FAERS Safety Report 10548192 (Version 2)
Quarter: 2015Q1

REPORT INFORMATION
  Report Type: Spontaneous
  Country: US (occurrence: None)
  Receive Date: 20141024
  Receipt Date: 20150227
  Transmission Date: 20150720
  Serious: Yes (Other)
  Sender: FDA-Public Use
  Company Number: 2014VER00271

PATIENT
  Age: 19 Year
  Sex: Female

DRUGS (4)
  1. MIDOL [Suspect]
     Active Substance: IBUPROFEN
  2. MYORISAN [Suspect]
     Active Substance: ISOTRETINOIN
     Dates: start: 20140909, end: 20141010
  3. UNSPECIFIED BIRTH CONTROL PILLS [Concomitant]
     Active Substance: UNSPECIFIED INGREDIENT
  4. EFFEXOR [Concomitant]
     Active Substance: VENLAFAXINE HYDROCHLORIDE

REACTIONS (4)
  - Pregnancy test positive [None]
  - Inappropriate schedule of drug administration [None]
  - Maternal exposure before pregnancy [None]
  - Abortion induced [None]

NARRATIVE: CASE EVENT DATE: 2014
